FAERS Safety Report 25305026 (Version 2)
Quarter: 2025Q3

REPORT INFORMATION
  Report Type: Spontaneous
  Country: US (occurrence: US)
  Receive Date: 20250513
  Receipt Date: 20250708
  Transmission Date: 20251020
  Serious: Yes (Other)
  Sender: PFIZER
  Company Number: US-PFIZER INC-202500098568

PATIENT
  Sex: Female

DRUGS (3)
  1. ELREXFIO [Suspect]
     Active Substance: ELRANATAMAB-BCMM
     Indication: Plasma cell myeloma
  2. ELREXFIO [Suspect]
     Active Substance: ELRANATAMAB-BCMM
  3. ELREXFIO [Suspect]
     Active Substance: ELRANATAMAB-BCMM

REACTIONS (4)
  - Immune effector cell-associated neurotoxicity syndrome [Unknown]
  - Mental disorder [Unknown]
  - Condition aggravated [Unknown]
  - Product dose omission issue [Unknown]
